FAERS Safety Report 25051229 (Version 1)
Quarter: 2025Q1

REPORT INFORMATION
  Report Type: Report from Study
  Country: ES (occurrence: ES)
  Receive Date: 20250307
  Receipt Date: 20250307
  Transmission Date: 20250409
  Serious: Yes (Other)
  Sender: TEVA
  Company Number: ES-TEVA-VS-3305012

PATIENT
  Age: 62 Year
  Sex: Male

DRUGS (6)
  1. TERIPARATIDE [Suspect]
     Active Substance: TERIPARATIDE
     Indication: Osteoporosis
     Route: 065
     Dates: start: 20240410, end: 2024
  2. SOLIFENACIN\TAMSULOSIN [Concomitant]
     Active Substance: SOLIFENACIN\TAMSULOSIN
     Indication: Benign prostatic hyperplasia
     Dosage: START DATE: LONG TIME AGO; CONTINUED
     Route: 065
  3. LEVOTHYROXINE SODIUM [Concomitant]
     Active Substance: LEVOTHYROXINE SODIUM
     Indication: Hypothyroidism
     Dosage: ONE IN THE MORNING, FROM LONG TIME AGO, CONTINUED
     Route: 065
  4. TRILEPTAL [Concomitant]
     Active Substance: OXCARBAZEPINE
     Indication: Craniocerebral injury
     Dosage: ONE IN THE MORNING AND ONE AT NIGHT, ?START DATE: LONG TIME AGO; CONTINUED
     Route: 065
  5. Balzac [Concomitant]
     Indication: Hypertension
     Dosage: START DATE: LONG TIME AGO;CONTINUED
     Route: 065
  6. PROLIA [Concomitant]
     Active Substance: DENOSUMAB
     Indication: Osteoporosis
     Dosage: CONTINUED
     Route: 065
     Dates: start: 202411

REACTIONS (3)
  - Hypercalcaemia [Recovered/Resolved]
  - Nephrolithiasis [Recovered/Resolved]
  - Calculus bladder [Recovered/Resolved]

NARRATIVE: CASE EVENT DATE: 20240101
